FAERS Safety Report 6226706-X (Version None)
Quarter: 2009Q2

REPORT INFORMATION
  Report Type: 
  Country: None (occurrence: None)
  Receive Date: 20090612
  Receipt Date: 20090604
  Transmission Date: 20091009
  Serious: Yes (Other)
  Sender: FDA-Public Use
  Company Number: BE-ASTRAZENECA-2009SE02236

PATIENT
  Age: 68 Year
  Sex: Female

DRUGS (2)
  1. ZOLADEX [Suspect]
     Indication: BREAST CANCER
     Route: 058
  2. TAMOXIFEN CITRATE [Concomitant]
     Route: 048

REACTIONS (1)
  - VENOUS THROMBOSIS [None]
